FAERS Safety Report 6271404-X (Version None)
Quarter: 2009Q3

REPORT INFORMATION
  Report Type: 
  Country: None (occurrence: None)
  Receive Date: 20090717
  Receipt Date: 20090710
  Transmission Date: 20100115
  Serious: Yes (Other)
  Sender: FDA-Public Use
  Company Number: FR-ROCHE-643750

PATIENT
  Sex: Male

DRUGS (12)
  1. RIVOTRIL [Suspect]
     Indication: FACIAL NEURALGIA
     Route: 048
     Dates: start: 20070601, end: 20090119
  2. RIVOTRIL [Suspect]
     Dosage: INCREASE IN DOSAGE
     Route: 048
     Dates: start: 20090119
  3. TEGRETOL [Suspect]
     Indication: FACIAL NEURALGIA
     Route: 048
     Dates: start: 20070501, end: 20070501
  4. TEGRETOL [Suspect]
     Route: 048
     Dates: start: 20071201
  5. LYRICA [Suspect]
     Indication: FACIAL NEURALGIA
     Dosage: 75 MG IN THE MORNING AND 150 MG  IN THE EVENING
     Route: 048
     Dates: start: 20070601, end: 20070601
  6. LYRICA [Suspect]
     Route: 048
     Dates: start: 20070701, end: 20070801
  7. LYRICA [Suspect]
     Dosage: 150 MG IN THE MORNING AND 450 MG IN THE EVENING
     Route: 048
     Dates: start: 20070801, end: 20080404
  8. LYRICA [Suspect]
     Dosage: 150 MG IN THER MORNING AND 300 MG IN THE EVENING
     Route: 048
     Dates: start: 20080404
  9. LAROXYL [Concomitant]
     Indication: DRUG USE FOR UNKNOWN INDICATION
     Route: 065
     Dates: end: 20090101
  10. KARDEGIC [Concomitant]
     Indication: DRUG USE FOR UNKNOWN INDICATION
     Dosage: ON 4 APRIL 2008, KARDEGIC WAS PURSUED 1 DOSE FORM
     Route: 048
  11. BETAFERON [Concomitant]
     Indication: DRUG USE FOR UNKNOWN INDICATION
     Route: 048
  12. LIORESAL [Concomitant]
     Indication: DRUG USE FOR UNKNOWN INDICATION
     Route: 048
     Dates: start: 20080404

REACTIONS (1)
  - VISUAL IMPAIRMENT [None]
